FAERS Safety Report 23844247 (Version 2)
Quarter: 2024Q2

REPORT INFORMATION
  Report Type: Report from Study
  Country: IT (occurrence: IT)
  Receive Date: 20240510
  Receipt Date: 20240522
  Transmission Date: 20240715
  Serious: Yes (Other)
  Sender: FDA-Public Use
  Company Number: None

PATIENT
  Age: 52 Year
  Sex: Female

DRUGS (3)
  1. CARBOPLATIN [Suspect]
     Active Substance: CARBOPLATIN
     Indication: Breast cancer
     Dosage: START OF THERAPY 03/14/2024 - THERAPY EVERY 21 DAYS ON G1 - I CYCLE:, CARBOPLATINO
     Route: 042
     Dates: start: 20240314, end: 20240314
  2. PEMBROLIZUMAB [Suspect]
     Active Substance: PEMBROLIZUMAB
     Indication: Breast cancer
     Dosage: START OF THERAPY 14/03/2024 - THERAPY EVERY 21 DAYS ON G1-I CYCLE:
     Route: 042
     Dates: start: 20240314, end: 20240314
  3. GEMCITABINE [Suspect]
     Active Substance: GEMCITABINE
     Indication: Breast cancer
     Dosage: START OF THERAPY 14/03/2024 - THERAPY EVERY 21 DAYS ON D1 AND D8 - 1ST CYCLE G1:?GEMCITABINA
     Route: 042
     Dates: start: 20240314, end: 20240314

REACTIONS (5)
  - Neutropenia [Recovering/Resolving]
  - Thrombocytopenia [Recovering/Resolving]
  - Leukopenia [Recovering/Resolving]
  - Vomiting [Recovered/Resolved]
  - Off label use [Recovering/Resolving]

NARRATIVE: CASE EVENT DATE: 20240301
